FAERS Safety Report 5346626-2 (Version None)
Quarter: 2007Q2

REPORT INFORMATION
  Report Type: 
  Country: None (occurrence: None)
  Receive Date: 20070604
  Receipt Date: 20070528
  Transmission Date: 20071010
  Serious: Yes (Other)
  Sender: FDA-Public Use
  Company Number: 056-C5013-07051492

PATIENT
  Age: 74 Year
  Sex: Female

DRUGS (1)
  1. CC-5013 (LENALIDOMIDE) [Suspect]
     Indication: MULTIPLE MYELOMA
     Dosage: 25  MG, 1 IN 1 D, ORAL
     Route: 048
     Dates: start: 20070115, end: 20070426

REACTIONS (6)
  - ARRHYTHMIA [None]
  - BREAST CANCER [None]
  - CARDIAC ANEURYSM [None]
  - CARDIAC FAILURE [None]
  - GENERAL PHYSICAL HEALTH DETERIORATION [None]
  - ISCHAEMIC CARDIOMYOPATHY [None]
